FAERS Safety Report 13056024 (Version 3)
Quarter: 2017Q1

REPORT INFORMATION
  Report Type: Spontaneous
  Country: US (occurrence: US)
  Receive Date: 20161222
  Receipt Date: 20170207
  Transmission Date: 20170428
  Serious: No
  Sender: FDA-Public Use
  Company Number: US-GLAXOSMITHKLINE-US2016189839

PATIENT
  Sex: Female

DRUGS (2)
  1. XOPENEX [Concomitant]
     Active Substance: LEVALBUTEROL HYDROCHLORIDE
  2. FLOVENT [Suspect]
     Active Substance: FLUTICASONE PROPIONATE
     Indication: ASTHMA
     Dosage: 1 PUFF(S), BID
     Route: 055
     Dates: start: 2006

REACTIONS (5)
  - Drug ineffective [Unknown]
  - Asthenia [Not Recovered/Not Resolved]
  - Asthma [Unknown]
  - Product quality issue [Unknown]
  - Dizziness [Not Recovered/Not Resolved]
